FAERS Safety Report 19745044 (Version 1)
Quarter: 2021Q3

REPORT INFORMATION
  Report Type: Spontaneous
  Country: US (occurrence: US)
  Receive Date: 20210824
  Receipt Date: 20210824
  Transmission Date: 20211014
  Serious: Yes (Life-Threatening, Hospitalization)
  Sender: FDA-Public Use
  Company Number: None

PATIENT
  Age: 71 Year
  Sex: Male
  Weight: 147 kg

DRUGS (11)
  1. CETIRIZINE 10 MG DAILY [Concomitant]
     Dates: start: 20180713
  2. METOPROLOL 50 MG BID [Concomitant]
     Dates: start: 20180713
  3. FLORASTOR 250 MG BID [Concomitant]
     Dates: start: 20180713
  4. MELOXICAM 15 MG DAILY [Concomitant]
     Dates: start: 20180713
  5. LEVOTHYROXINE 125 MCG DAILY [Concomitant]
     Dates: start: 20180713
  6. LOSARTAN 100 MG DAILY [Concomitant]
     Dates: start: 20180713
  7. CHOLECALCIFEROL, DV 2,000 UNITS DAILY [Concomitant]
     Dates: start: 20180713
  8. WARFARIN [Suspect]
     Active Substance: WARFARIN
     Route: 048
     Dates: end: 20210823
  9. ALLOPURINOL 300 MG DAILY [Concomitant]
     Dates: start: 20180713
  10. MONTELUKAST 10 MG DAILY [Concomitant]
     Dates: start: 20210713
  11. SIMVASTATIN 40 MG DAILY [Concomitant]
     Dates: start: 20180713

REACTIONS (2)
  - Subdural haemorrhage [None]
  - International normalised ratio increased [None]

NARRATIVE: CASE EVENT DATE: 20210823
